FAERS Safety Report 11840451 (Version 1)
Quarter: 2015Q4

REPORT INFORMATION
  Report Type: Spontaneous
  Country: US (occurrence: None)
  Receive Date: 20151215
  Receipt Date: 20151215
  Transmission Date: 20160305
  Serious: Yes (Other)
  Sender: FDA-Public Use
  Company Number: None

PATIENT
  Age: 56 Year
  Sex: Female
  Weight: 69.4 kg

DRUGS (2)
  1. ARMOUR THYROID [Suspect]
     Active Substance: THYROID, PORCINE\THYROID, UNSPECIFIED
     Indication: HYPOTHYROIDISM
     Route: 048
     Dates: start: 20151001, end: 20151202
  2. ARMOUR THYROID [Suspect]
     Active Substance: THYROID, PORCINE\THYROID, UNSPECIFIED
     Indication: AUTOIMMUNE THYROIDITIS
     Route: 048
     Dates: start: 20151001, end: 20151202

REACTIONS (3)
  - Asthenia [None]
  - Feeling abnormal [None]
  - Product formulation issue [None]

NARRATIVE: CASE EVENT DATE: 20151202
